FAERS Safety Report 8287390-7 (Version None)
Quarter: 2012Q2

REPORT INFORMATION
  Report Type: 
  Country: None (occurrence: None)
  Receive Date: 20120416
  Receipt Date: 20120411
  Transmission Date: 20120825
  Serious: Yes (Other)
  Sender: FDA-Public Use
  Company Number: US-PFIZER INC-2012091037

PATIENT
  Sex: Female
  Weight: 72.562 kg

DRUGS (6)
  1. EFFEXOR XR [Suspect]
     Indication: STRESS
     Dosage: UNK
     Route: 048
  2. EFFEXOR XR [Suspect]
     Indication: ANXIETY
     Dosage: 300 MG, 1X/DAY
     Route: 048
     Dates: end: 20120403
  3. PRISTIQ [Suspect]
     Indication: DEPRESSION
  4. TRAZODONE [Concomitant]
     Dosage: 150 MG, 1X/DAY
  5. PRISTIQ [Suspect]
     Indication: ANXIETY
     Dosage: 50 MG, 1X/DAY
     Route: 048
     Dates: start: 20120404, end: 20120404
  6. DIAZEPAM [Concomitant]
     Dosage: 5 MG, 3X/DAY

REACTIONS (3)
  - DRUG INEFFECTIVE [None]
  - GALLBLADDER DISORDER [None]
  - DRUG WITHDRAWAL SYNDROME [None]
